FAERS Safety Report 8079370-1 (Version None)
Quarter: 2012Q1

REPORT INFORMATION
  Report Type: 
  Country: None (occurrence: None)
  Receive Date: 20120128
  Receipt Date: 20110820
  Transmission Date: 20120608
  Serious: Yes (Other)
  Sender: FDA-Public Use
  Company Number: US-ABBOTT-11P-163-0848567-00

PATIENT
  Age: 41 Year
  Sex: Female

DRUGS (9)
  1. MARINOL [Concomitant]
     Indication: CROHN'S DISEASE
     Dosage: 1 IN 2 WEEKS, 2-4 DOSES
  2. HUMIRA [Suspect]
     Indication: CROHN'S DISEASE
     Route: 058
     Dates: start: 20070101
  3. COMPAZINE [Concomitant]
     Indication: NAUSEA
  4. NEXIUM [Concomitant]
     Indication: CROHN'S DISEASE
  5. FOLIC ACID [Concomitant]
     Indication: VITAMIN SUPPLEMENTATION
     Route: 048
  6. MULTI-VITAMIN [Concomitant]
     Indication: VITAMIN SUPPLEMENTATION
     Route: 048
  7. PREDNISONE TAB [Concomitant]
     Indication: CROHN'S DISEASE
  8. VITAMIN D [Concomitant]
     Indication: VITAMIN SUPPLEMENTATION
  9. ONDANSETRON HCL [Concomitant]
     Indication: NAUSEA

REACTIONS (6)
  - RECTAL ABSCESS [None]
  - PROCTALGIA [None]
  - ADHESION [None]
  - FEELING ABNORMAL [None]
  - SCAR [None]
  - HEADACHE [None]
